FAERS Safety Report 9982991 (Version 1)
Quarter: 2014Q1

REPORT INFORMATION
  Report Type: Report from Study
  Country: US (occurrence: US)
  Receive Date: 20140307
  Receipt Date: 20140307
  Transmission Date: 20141002
  Serious: No
  Sender: FDA-Public Use
  Company Number: US-ABBVIE-13P-163-1177736-00

PATIENT
  Age: 58 Year
  Sex: Male

DRUGS (5)
  1. HUMIRA [Suspect]
     Indication: PSORIATIC ARTHROPATHY
     Dates: start: 2009
  2. CLARITIN [Concomitant]
     Indication: HYPERSENSITIVITY
  3. BENADRYL [Concomitant]
     Indication: HYPERSENSITIVITY
  4. ASPIRIN [Concomitant]
     Indication: ARTHRALGIA
  5. ASPIRIN [Concomitant]
     Indication: HEADACHE

REACTIONS (1)
  - Psoriasis [Not Recovered/Not Resolved]
